FAERS Safety Report 9435681 (Version 3)
Quarter: 2013Q3

REPORT INFORMATION
  Report Type: Spontaneous
  Country: IT (occurrence: IT)
  Receive Date: 20130801
  Receipt Date: 20130922
  Transmission Date: 20140515
  Serious: Yes (Life-Threatening)
  Sender: FDA-Public Use
  Company Number: IT-MYLANLABS-2013S1016397

PATIENT
  Age: 82 Year
  Sex: Female

DRUGS (10)
  1. ATENOLOL [Suspect]
     Indication: HYPERTENSION
     Route: 048
     Dates: start: 20110101, end: 20130530
  2. ATENOLOL [Suspect]
     Indication: HYPERTENSION
     Route: 048
  3. RYTMONORM [Suspect]
     Indication: ATRIAL FIBRILLATION
     Route: 048
     Dates: start: 20110101, end: 20130530
  4. ARIXTRA [Concomitant]
     Indication: PRODUCT USED FOR UNKNOWN INDICATION
  5. ANTRA /00661201/ [Concomitant]
     Indication: PRODUCT USED FOR UNKNOWN INDICATION
  6. TACHIDOL [Concomitant]
     Indication: PRODUCT USED FOR UNKNOWN INDICATION
  7. RILUTEK [Concomitant]
     Indication: AMYOTROPHIC LATERAL SCLEROSIS
  8. ENALAPRIL [Concomitant]
     Indication: HYPERTENSION
  9. CITALOPRAM [Concomitant]
     Indication: PRODUCT USED FOR UNKNOWN INDICATION
  10. ALPRAZOLAM [Concomitant]
     Indication: PRODUCT USED FOR UNKNOWN INDICATION

REACTIONS (2)
  - Bradycardia [Recovering/Resolving]
  - Malaise [Recovering/Resolving]
